FAERS Safety Report 18173774 (Version 1)
Quarter: 2020Q3

REPORT INFORMATION
  Report Type: Spontaneous
  Country: US (occurrence: US)
  Receive Date: 20200819
  Receipt Date: 20200819
  Transmission Date: 20201103
  Serious: No
  Sender: FDA-Public Use
  Company Number: NVSC2020US229137

PATIENT
  Sex: Female

DRUGS (1)
  1. PATADAY [Suspect]
     Active Substance: OLOPATADINE HYDROCHLORIDE
     Indication: PRODUCT USED FOR UNKNOWN INDICATION
     Dosage: (0.2% 2ML) ONCE DAILY RELIEF EYE ALLERGY ITCH RELIEF
     Route: 065

REACTIONS (2)
  - Eye swelling [Unknown]
  - Eye pain [Unknown]

NARRATIVE: CASE EVENT DATE: 20200817
